FAERS Safety Report 17340201 (Version 1)
Quarter: 2020Q1

REPORT INFORMATION
  Report Type: Spontaneous
  Country: US (occurrence: US)
  Receive Date: 20200129
  Receipt Date: 20200129
  Transmission Date: 20200409
  Serious: No
  Sender: FDA-Public Use
  Company Number: US-ALLERGAN-1923830US

PATIENT
  Sex: Female

DRUGS (2)
  1. BOTOX COSMETIC [Suspect]
     Active Substance: ONABOTULINUMTOXINA
     Indication: SKIN WRINKLING
     Dosage: UNK, SINGLE
     Route: 030
     Dates: start: 201808, end: 201808
  2. JUVEDERM [Suspect]
     Active Substance: HYALURONIC ACID
     Indication: LIP COSMETIC PROCEDURE
     Dosage: UNK, SINGLE
     Dates: start: 201808, end: 201808

REACTIONS (1)
  - Tinnitus [Unknown]
